FAERS Safety Report 24790108 (Version 1)
Quarter: 2024Q4

REPORT INFORMATION
  Report Type: Spontaneous
  Country: SI (occurrence: SI)
  Receive Date: 20241230
  Receipt Date: 20241230
  Transmission Date: 20250115
  Serious: Yes (Other)
  Sender: MYLAN
  Company Number: None

PATIENT
  Age: 82 Year
  Sex: Male

DRUGS (6)
  1. ZOLOFT [Suspect]
     Active Substance: SERTRALINE HYDROCHLORIDE
     Indication: Depression
     Dosage: 50 MILLIGRAM, QD (1X1)
     Route: 048
     Dates: start: 20241125
  2. AMLODIPINE BESYLATE\INDAPAMIDE\PERINDOPRIL ARGININE [Suspect]
     Active Substance: AMLODIPINE BESYLATE\INDAPAMIDE\PERINDOPRIL ARGININE
     Indication: Hypertension
     Dosage: 50 MILLIGRAM, QD (1X/DAY 1 TABLET (27-NOV-2024 HE TOOK AT 6:00 P.M., THEN AGAIN ON 28-NOV-2024 IN TH
     Route: 048
     Dates: start: 20241127, end: 20241128
  3. CAPTOPRIL [Concomitant]
     Active Substance: CAPTOPRIL
     Indication: Hypertension
     Dosage: 25 MILLIGRAM, QD (1X1)
     Route: 048
     Dates: start: 20241123
  4. ALPRAZOLAM [Concomitant]
     Active Substance: ALPRAZOLAM
     Indication: Restlessness
     Dosage: 0.25 MILLIGRAM, QD (1X1)
     Route: 048
     Dates: start: 20241106
  5. ALPRAZOLAM [Concomitant]
     Active Substance: ALPRAZOLAM
     Indication: Anxiety
  6. INDAPAMIDE\PERINDOPRIL ERBUMINE [Concomitant]
     Active Substance: INDAPAMIDE\PERINDOPRIL ERBUMINE
     Indication: Hypertension
     Dosage: 1 DOSAGE FORM, QD (1X1)
     Route: 048
     Dates: start: 20241123

REACTIONS (3)
  - Orthostatic hypotension [Recovered/Resolved]
  - Hyponatraemia [Recovering/Resolving]
  - Syncope [Recovered/Resolved]

NARRATIVE: CASE EVENT DATE: 20241126
